FAERS Safety Report 15920516 (Version 1)
Quarter: 2019Q1

REPORT INFORMATION
  Report Type: Spontaneous
  Country: GB (occurrence: GB)
  Receive Date: 20190205
  Receipt Date: 20190205
  Transmission Date: 20190417
  Serious: Yes (Other)
  Sender: FDA-Public Use
  Company Number: GB-TEVA-2019-GB-1008209

PATIENT
  Age: 65 Year
  Sex: Female

DRUGS (3)
  1. QUININE [Concomitant]
     Active Substance: QUININE
  2. LOSARTAN. [Concomitant]
     Active Substance: LOSARTAN
  3. CO-AMOXICLAV [Suspect]
     Active Substance: AMOXICILLIN\CLAVULANATE POTASSIUM
     Indication: TOOTH ABSCESS
     Dosage: 250/125 MG
     Route: 048
     Dates: start: 20190110, end: 20190112

REACTIONS (5)
  - Pyrexia [Recovering/Resolving]
  - Cough [Recovering/Resolving]
  - Back pain [Recovering/Resolving]
  - Arthralgia [Recovering/Resolving]
  - Diarrhoea [Recovering/Resolving]

NARRATIVE: CASE EVENT DATE: 20190112
